FAERS Safety Report 24247358 (Version 1)
Quarter: 2024Q3

REPORT INFORMATION
  Report Type: Spontaneous
  Country: MX (occurrence: MX)
  Receive Date: 20240826
  Receipt Date: 20240826
  Transmission Date: 20241016
  Serious: Yes (Other)
  Sender: ROCHE
  Company Number: MX-ROCHE-10000056101

PATIENT
  Age: 58 Year
  Sex: Female
  Weight: 73 kg

DRUGS (4)
  1. PERJETA [Suspect]
     Active Substance: PERTUZUMAB
     Indication: Breast cancer
     Route: 042
     Dates: start: 20240110, end: 20240607
  2. VINORELBINE [Concomitant]
     Active Substance: VINORELBINE TARTRATE
     Route: 048
  3. LETROZOLE [Concomitant]
     Active Substance: LETROZOLE
     Route: 048
  4. TRAZIMERA [Concomitant]
     Active Substance: TRASTUZUMAB-QYYP

REACTIONS (1)
  - Metastasis [Not Recovered/Not Resolved]

NARRATIVE: CASE EVENT DATE: 20240609
